FAERS Safety Report 18947430 (Version 1)
Quarter: 2021Q1

REPORT INFORMATION
  Report Type: Spontaneous
  Country: CA (occurrence: CA)
  Receive Date: 20210226
  Receipt Date: 20210226
  Transmission Date: 20210420
  Serious: Yes (Hospitalization, Other)
  Sender: FDA-Public Use
  Company Number: CA-TAKEDA-2021TUS010916

PATIENT
  Age: 25 Year
  Sex: Female

DRUGS (8)
  1. HUMAN NORMAL IMMUNOGLOBULIN [Suspect]
     Active Substance: HUMAN IMMUNOGLOBULIN G
     Indication: HAEMOLYSIS
  2. RITUXAN [Suspect]
     Active Substance: RITUXIMAB
     Indication: HAEMOLYSIS
  3. HYDROXYUREA. [Suspect]
     Active Substance: HYDROXYUREA
     Indication: SICKLE CELL DISEASE
     Route: 065
  4. METHYLPREDNISOLONE. [Suspect]
     Active Substance: METHYLPREDNISOLONE
     Indication: PROPHYLAXIS
     Dosage: 250 MILLIGRAM
     Route: 042
  5. HUMAN NORMAL IMMUNOGLOBULIN [Suspect]
     Active Substance: HUMAN IMMUNOGLOBULIN G
     Indication: PROPHYLAXIS
     Dosage: 0.4 GRAM PER KILOGRAM
     Route: 042
  6. METHYLPREDNISOLONE. [Suspect]
     Active Substance: METHYLPREDNISOLONE
     Indication: HAEMOLYSIS
  7. RED BLOOD CELLS [Concomitant]
     Active Substance: HUMAN RED BLOOD CELL
     Route: 065
  8. RITUXAN [Suspect]
     Active Substance: RITUXIMAB
     Indication: PROPHYLAXIS
     Dosage: 500 MILLIGRAM, 1/WEEK
     Route: 042

REACTIONS (3)
  - Acute chest syndrome [Unknown]
  - Maternal exposure during pregnancy [Unknown]
  - Drug effective for unapproved indication [Unknown]
